FAERS Safety Report 8066018-5 (Version None)
Quarter: 2012Q1

REPORT INFORMATION
  Report Type: 
  Country: None (occurrence: None)
  Receive Date: 20120124
  Receipt Date: 20120113
  Transmission Date: 20120608
  Serious: Yes (Hospitalization)
  Sender: FDA-Public Use
  Company Number: FR-NOVOPROD-343129

PATIENT
  Age: 62 Year
  Sex: Female

DRUGS (4)
  1. METFORMIN HCL [Concomitant]
  2. FORLAX                             /00754501/ [Concomitant]
  3. VICTOZA [Suspect]
     Indication: TYPE 2 DIABETES MELLITUS
     Dosage: UNK
     Route: 058
     Dates: start: 20100101, end: 20110101
  4. COVERSYL                           /00790702/ [Concomitant]

REACTIONS (3)
  - WEIGHT DECREASED [None]
  - IRON DEFICIENCY [None]
  - HYPERLIPASAEMIA [None]
